FAERS Safety Report 9661040 (Version 1)
Quarter: 2013Q4

REPORT INFORMATION
  Report Type: Spontaneous
  Country: JP (occurrence: JP)
  Receive Date: 20131031
  Receipt Date: 20131031
  Transmission Date: 20140711
  Serious: Yes (Other)
  Sender: FDA-Public Use
  Company Number: JP-GLAXOSMITHKLINE-B0921568A

PATIENT
  Age: 20 Year
  Sex: Female

DRUGS (2)
  1. LAMICTAL [Suspect]
     Indication: EPILEPSY
     Dosage: 25MG ALTERNATE DAYS
     Route: 048
     Dates: start: 20120713, end: 20120725
  2. DEPAKENE-R [Concomitant]
     Indication: EPILEPSY
     Route: 048
     Dates: start: 20110411

REACTIONS (5)
  - Bone marrow failure [Recovered/Resolved]
  - Oral mucosal erythema [Recovered/Resolved]
  - Rash generalised [Recovered/Resolved]
  - Hepatic function abnormal [Recovered/Resolved]
  - Conjunctival hyperaemia [Recovered/Resolved]
